FAERS Safety Report 14145495 (Version 2)
Quarter: 2017Q4

REPORT INFORMATION
  Report Type: Spontaneous
  Country: CA (occurrence: CA)
  Receive Date: 20171031
  Receipt Date: 20171101
  Transmission Date: 20180321
  Serious: Yes (Other)
  Sender: FDA-Public Use
  Company Number: PHHY2017CA155366

PATIENT
  Age: 49 Year
  Sex: Female

DRUGS (10)
  1. LETROZOLE. [Suspect]
     Active Substance: LETROZOLE
     Dosage: UNK
     Route: 065
     Dates: start: 201611
  2. CLODRONATO [Suspect]
     Active Substance: CLODRONATE DISODIUM
     Indication: BREAST CANCER
     Dosage: UNK
     Route: 065
     Dates: start: 201003, end: 201211
  3. TAMOXIFEN [Suspect]
     Active Substance: TAMOXIFEN
     Indication: BREAST CANCER
     Dosage: UNK
     Route: 065
     Dates: start: 201111, end: 201209
  4. CAPECITABINE. [Suspect]
     Active Substance: CAPECITABINE
     Indication: BREAST CANCER
     Dosage: UNK
     Route: 065
     Dates: start: 201408, end: 201604
  5. ERIBULIN [Suspect]
     Active Substance: ERIBULIN
     Indication: BREAST CANCER
     Dosage: UNK
     Route: 065
     Dates: start: 201605, end: 201611
  6. FULVESTRANT. [Suspect]
     Active Substance: FULVESTRANT
     Indication: BREAST CANCER
     Dosage: UNK
     Route: 005
     Dates: start: 201611
  7. PALBOCICLIB [Suspect]
     Active Substance: PALBOCICLIB
     Indication: BREAST CANCER
     Dosage: UNK
     Route: 065
     Dates: start: 201611
  8. LETROZOLE. [Suspect]
     Active Substance: LETROZOLE
     Indication: BREAST CANCER
     Dosage: UNK
     Route: 065
     Dates: start: 201003, end: 201111
  9. PACLITAXEL. [Suspect]
     Active Substance: PACLITAXEL
     Indication: BREAST CANCER
     Dosage: UNK
     Route: 065
     Dates: start: 201403, end: 201406
  10. LETROZOLE. [Suspect]
     Active Substance: LETROZOLE
     Dosage: UNK
     Route: 065
     Dates: start: 201209, end: 201403

REACTIONS (11)
  - Protein total increased [Unknown]
  - Meningoencephalitis herpetic [Unknown]
  - Asthenia [Unknown]
  - Breast cancer [Unknown]
  - Metastases to liver [Unknown]
  - Platelet count decreased [Recovering/Resolving]
  - Headache [Unknown]
  - Malignant neoplasm progression [Unknown]
  - Immunosuppression [Unknown]
  - Metastases to eye [Unknown]
  - Metastases to central nervous system [Unknown]

NARRATIVE: CASE EVENT DATE: 201611
